FAERS Safety Report 8602255 (Version 3)
Quarter: 2012Q4

REPORT INFORMATION
  Report Type: 
  Country: GR (occurrence: GR)
  Receive Date: 20120607
  Receipt Date: 20120829
  Transmission Date: 20130627
  Serious: Yes (Hospitalization)
  Sender: FDA-Public Use
  Company Number: GR-JNJFOC-20120601937

PATIENT
  Sex: Male

DRUGS (2)
  1. STELARA [Suspect]
     Indication: PSORIASIS
     Route: 058
     Dates: start: 201206
  2. STELARA [Suspect]
     Indication: PSORIASIS
     Route: 058
     Dates: start: 20111203

REACTIONS (5)
  - Upper respiratory tract infection [Recovered/Resolved]
  - Haematocrit decreased [Recovered/Resolved]
  - Adverse event [Unknown]
  - Drug dose omission [Unknown]
  - Drug ineffective [Unknown]
